FAERS Safety Report 5849643-9 (Version None)
Quarter: 2008Q3

REPORT INFORMATION
  Report Type: 
  Country: None (occurrence: None)
  Receive Date: 20080819
  Receipt Date: 20080811
  Transmission Date: 20090109
  Serious: Yes (Hospitalization)
  Sender: FDA-Public Use
  Company Number: US-GILEAD-2008-0017728

PATIENT
  Sex: Female
  Weight: 45.4 kg

DRUGS (10)
  1. LETAIRIS [Suspect]
     Indication: PULMONARY HYPERTENSION
     Route: 048
  2. REVATIO [Concomitant]
     Route: 048
  3. LASIX [Concomitant]
     Route: 048
  4. MONOPRIL [Concomitant]
     Route: 048
  5. AVALIDE [Concomitant]
     Dosage: 300-12.5
     Route: 048
  6. LIPITOR [Concomitant]
     Route: 048
  7. NOVOLIN [Concomitant]
     Route: 058
  8. GLYBURIDE [Concomitant]
     Route: 048
  9. SYNTHROID [Concomitant]
     Route: 048
  10. PRILOSEC [Concomitant]
     Route: 048

REACTIONS (1)
  - PELVIC FRACTURE [None]
